FAERS Safety Report 4461248-3 (Version None)
Quarter: 2004Q3

REPORT INFORMATION
  Report Type: 
  Country: None (occurrence: None)
  Receive Date: 20040928
  Receipt Date: 20040826
  Transmission Date: 20050211
  Serious: Yes (Hospitalization)
  Sender: FDA-Public Use
  Company Number: FR-ROCHE-378555

PATIENT
  Age: 49 Year
  Sex: Female

DRUGS (13)
  1. KYTRIL [Suspect]
     Indication: DRUG USE FOR UNKNOWN INDICATION
     Route: 042
     Dates: start: 20040421, end: 20040421
  2. TAXOL [Suspect]
     Indication: DRUG USE FOR UNKNOWN INDICATION
     Route: 042
     Dates: start: 20040421, end: 20040421
  3. TAXOL [Suspect]
     Route: 042
     Dates: start: 20040512, end: 20040512
  4. TAXOL [Suspect]
     Route: 042
     Dates: start: 20040526, end: 20040526
  5. CARBOPLATINE [Suspect]
     Indication: DRUG USE FOR UNKNOWN INDICATION
     Route: 042
     Dates: start: 20040421, end: 20040421
  6. CARBOPLATINE [Suspect]
     Route: 042
     Dates: start: 20040512, end: 20040512
  7. CARBOPLATINE [Suspect]
     Route: 042
     Dates: start: 20040526, end: 20040526
  8. METHYLPREDNISOLONE [Suspect]
     Indication: DRUG USE FOR UNKNOWN INDICATION
     Dosage: MARKETED BY MERCK LABO9RATORY.
     Route: 042
     Dates: start: 20040421, end: 20040421
  9. METHYLPREDNISOLONE [Suspect]
     Route: 042
     Dates: start: 20040512, end: 20040512
  10. METHYLPREDNISOLONE [Suspect]
     Route: 042
     Dates: start: 20040526, end: 20040526
  11. POLARAMINE [Suspect]
     Indication: DRUG USE FOR UNKNOWN INDICATION
     Route: 042
     Dates: start: 20040421, end: 20040421
  12. POLARAMINE [Suspect]
     Route: 042
     Dates: start: 20040512, end: 20040512
  13. POLARAMINE [Suspect]
     Route: 042
     Dates: start: 20040526, end: 20040526

REACTIONS (1)
  - INTESTINAL OBSTRUCTION [None]
